FAERS Safety Report 24884190 (Version 2)
Quarter: 2025Q1

REPORT INFORMATION
  Report Type: Spontaneous
  Country: FR (occurrence: FR)
  Receive Date: 20250124
  Receipt Date: 20250226
  Transmission Date: 20250408
  Serious: No
  Sender: TEVA
  Company Number: FR-TEVA-VS-3287606

PATIENT
  Age: 44 Year
  Sex: Male

DRUGS (1)
  1. PROPRANOLOL HYDROCHLORIDE [Suspect]
     Active Substance: PROPRANOLOL HYDROCHLORIDE
     Indication: Migraine
     Dosage: DOSAGE: ONE HALF-TABLET TWICE A DAY (I.E. ONE HALF-TABLET IN THE MORNING AND IN THE EVENING)
     Route: 065
     Dates: start: 202501

REACTIONS (8)
  - Sinonasal obstruction [Not Recovered/Not Resolved]
  - Feeling abnormal [Not Recovered/Not Resolved]
  - Dizziness [Not Recovered/Not Resolved]
  - Sensation of blood flow [Not Recovered/Not Resolved]
  - Head discomfort [Not Recovered/Not Resolved]
  - Tinnitus [Not Recovered/Not Resolved]
  - Eye pain [Not Recovered/Not Resolved]
  - Allergic reaction to excipient [Not Recovered/Not Resolved]

NARRATIVE: CASE EVENT DATE: 20250101
